FAERS Safety Report 6133360-4 (Version None)
Quarter: 2009Q1

REPORT INFORMATION
  Report Type: 
  Country: None (occurrence: None)
  Receive Date: 20090326
  Receipt Date: 20090316
  Transmission Date: 20090719
  Serious: Yes (Other)
  Sender: FDA-Public Use
  Company Number: US-ELI_LILLY_AND_COMPANY-US200903003879

PATIENT
  Age: 28 Year
  Sex: Male

DRUGS (7)
  1. FORTEO [Suspect]
     Indication: OSTEOPOROSIS
     Dates: start: 20081101
  2. FORTEO [Suspect]
     Dosage: UNK, 3/W
     Dates: start: 20090101
  3. BACLOFEN [Concomitant]
  4. MUSCLE RELAXANTS [Concomitant]
  5. DEPAKOTE [Concomitant]
  6. ZARONTIN [Concomitant]
  7. SENOKOT [Concomitant]

REACTIONS (4)
  - CONVULSION [None]
  - HEAD TITUBATION [None]
  - POOR QUALITY SLEEP [None]
  - RESTLESS LEGS SYNDROME [None]
